FAERS Safety Report 7137625-9 (Version None)
Quarter: 2010Q4

REPORT INFORMATION
  Report Type: 
  Country: None (occurrence: None)
  Receive Date: 20101103
  Receipt Date: 20100429
  Transmission Date: 20110411
  Serious: Yes (Other)
  Sender: FDA-Public Use
  Company Number: 2010S1000246

PATIENT

DRUGS (1)
  1. CUBICIN [Suspect]
     Indication: PRODUCT USED FOR UNKNOWN INDICATION
     Dosage: 500 MG; IV
     Route: 042
     Dates: end: 20100429

REACTIONS (1)
  - EOSINOPHILIC PNEUMONIA [None]
